FAERS Safety Report 7746006-6 (Version None)
Quarter: 2011Q3

REPORT INFORMATION
  Report Type: 
  Country: None (occurrence: None)
  Receive Date: 20110913
  Receipt Date: 20110714
  Transmission Date: 20111222
  Serious: No
  Sender: FDA-Public Use
  Company Number: ES-ELI_LILLY_AND_COMPANY-ES201107004012

PATIENT
  Sex: Female

DRUGS (5)
  1. CYMBALTA [Suspect]
     Dosage: 60 MG, UNKNOWN
  2. OPIAT [Concomitant]
  3. VALIUM [Concomitant]
  4. CYMBALTA [Suspect]
     Dosage: 90 MG, UNKNOWN
  5. OPIAT [Concomitant]
     Route: 048

REACTIONS (3)
  - EYELID OEDEMA [None]
  - OEDEMA PERIPHERAL [None]
  - ASCITES [None]
